FAERS Safety Report 6573482-7 (Version None)
Quarter: 2010Q1

REPORT INFORMATION
  Report Type: 
  Country: None (occurrence: None)
  Receive Date: 20100204
  Receipt Date: 20100204
  Transmission Date: 20100710
  Serious: Yes (Other)
  Sender: FDA-Public Use
  Company Number: None

PATIENT
  Age: 56 Year
  Sex: Female
  Weight: 62 kg

DRUGS (5)
  1. CERTOLIZUMAB PEGOL [Suspect]
     Indication: RHEUMATOID ARTHRITIS
     Dosage: INJECTION,  400 MG 1X/2 WEEKS
     Route: 058
     Dates: start: 20060510, end: 20080521
  2. CERTOLIZUMAB PEGOL [Suspect]
     Dosage: INJECTION 200 MG 2X/WEEK, - NR OF DOSES :39
     Route: 058
     Dates: start: 20080521, end: 20091118
  3. METHOTREXATE [Concomitant]
  4. FOLIC ACID [Concomitant]
  5. ACETYSALICYLIC ACID [Concomitant]

REACTIONS (4)
  - CONDITION AGGRAVATED [None]
  - ESSENTIAL THROMBOCYTHAEMIA [None]
  - MYELOPROLIFERATIVE DISORDER [None]
  - POLYCYTHAEMIA [None]
